FAERS Safety Report 22177853 (Version 1)
Quarter: 2023Q2

REPORT INFORMATION
  Report Type: Spontaneous
  Country: CA (occurrence: CA)
  Receive Date: 20230405
  Receipt Date: 20230405
  Transmission Date: 20230722
  Serious: Yes (Other)
  Sender: FDA-Public Use
  Company Number: CA-SUNOVION-2023SUN000470

PATIENT
  Age: 92 Year
  Sex: Female

DRUGS (1)
  1. KYNMOBI [Suspect]
     Active Substance: APOMORPHINE HYDROCHLORIDE
     Dosage: UNK
     Route: 060
     Dates: start: 20230330

REACTIONS (4)
  - Blood pressure systolic increased [Unknown]
  - Drug ineffective [Unknown]
  - Dyskinesia [Unknown]
  - Fatigue [Unknown]

NARRATIVE: CASE EVENT DATE: 20230330
